FAERS Safety Report 6433980-3 (Version None)
Quarter: 2009Q4

REPORT INFORMATION
  Report Type: 
  Country: None (occurrence: None)
  Receive Date: 20091106
  Receipt Date: 20091106
  Transmission Date: 20100525
  Serious: Yes (Hospitalization)
  Sender: FDA-Public Use
  Company Number: None

PATIENT
  Age: 71 Year
  Sex: Male
  Weight: 72 kg

DRUGS (2)
  1. DIVALPROEX SODIUM [Suspect]
     Indication: BIPOLAR DISORDER
     Dosage: 2000 MG EVERY DAY PO
     Route: 048
  2. DIVALPROEX SODIUM [Suspect]
     Indication: MANIA
     Dosage: 2000 MG EVERY DAY PO
     Route: 048

REACTIONS (1)
  - HYPONATRAEMIA [None]
